FAERS Safety Report 10956757 (Version 1)
Quarter: 2015Q1

REPORT INFORMATION
  Report Type: Spontaneous
  Country: US (occurrence: None)
  Receive Date: 20150325
  Receipt Date: 20150325
  Transmission Date: 20150721
  Serious: No
  Sender: FDA-Public Use
  Company Number: None

PATIENT
  Age: 1 Year
  Sex: Male
  Weight: 12.25 kg

DRUGS (2)
  1. MULTI-VIT WITH FLUORIDE AND IRON [Suspect]
     Active Substance: .ALPHA.-TOCOPHEROL ACETATE, DL-\ASCORBIC ACID\CHOLECALCIFEROL\FERROUS SULFATE\NIACINAMIDE\PYRIDOXINE HYDROCHLORIDE\RIBOFLAVIN\SODIUM FLUORIDE\THIAMINE HYDROCHLORIDE\VITAMIN A PALMITATE
     Indication: VITAMIN SUPPLEMENTATION
     Route: 048
     Dates: start: 20150312, end: 20150324
  2. MULTI-VIT WITH FLUORIDE AND IRON [Suspect]
     Active Substance: .ALPHA.-TOCOPHEROL ACETATE, DL-\ASCORBIC ACID\CHOLECALCIFEROL\FERROUS SULFATE\NIACINAMIDE\PYRIDOXINE HYDROCHLORIDE\RIBOFLAVIN\SODIUM FLUORIDE\THIAMINE HYDROCHLORIDE\VITAMIN A PALMITATE
     Route: 048
     Dates: start: 20150312, end: 20150324

REACTIONS (3)
  - Parosmia [None]
  - Medication residue present [None]
  - Sensory disturbance [None]

NARRATIVE: CASE EVENT DATE: 20150324
